FAERS Safety Report 8371759-6 (Version None)
Quarter: 2012Q2

REPORT INFORMATION
  Report Type: 
  Country: None (occurrence: None)
  Receive Date: 20120518
  Receipt Date: 20120508
  Transmission Date: 20120825
  Serious: Yes (Hospitalization)
  Sender: FDA-Public Use
  Company Number: US-BAXTER-2012BAX004281

PATIENT

DRUGS (4)
  1. DIANEAL [Suspect]
     Indication: PERITONEAL DIALYSIS
     Route: 033
     Dates: end: 20120419
  2. HEPARIN [Suspect]
     Indication: FIBRIN
     Dosage: 6 ML TO EACH 6 L BAG
     Route: 033
     Dates: end: 20120425
  3. HEPARIN [Suspect]
     Dosage: 6 ML TO ONE 6 L BAG
     Route: 033
  4. DIANEAL [Suspect]
     Route: 033
     Dates: start: 20120425

REACTIONS (1)
  - GASTROINTESTINAL HAEMORRHAGE [None]
